FAERS Safety Report 15530620 (Version 1)
Quarter: 2018Q4

REPORT INFORMATION
  Report Type: Spontaneous
  Country: US (occurrence: US)
  Receive Date: 20181018
  Receipt Date: 20181018
  Transmission Date: 20190205
  Serious: No
  Sender: FDA-Public Use
  Company Number: US-BIOMARINAP-US-2018-120327

PATIENT
  Sex: Male

DRUGS (1)
  1. BRINEURA [Suspect]
     Active Substance: CERLIPONASE ALFA
     Indication: NEURONAL CEROID LIPOFUSCINOSIS
     Dosage: UNK UNK, QOW
     Route: 020
     Dates: start: 20171218

REACTIONS (2)
  - Vomiting [Recovering/Resolving]
  - Pyrexia [Recovering/Resolving]
